FAERS Safety Report 11898212 (Version 1)
Quarter: 2016Q1

REPORT INFORMATION
  Report Type: Spontaneous
  Country: GB (occurrence: GB)
  Receive Date: 20160108
  Receipt Date: 20160108
  Transmission Date: 20160526
  Serious: Yes (Life-Threatening, Hospitalization)
  Sender: FDA-Public Use
  Company Number: GB-ACTAVIS-2015-28708

PATIENT
  Sex: Female

DRUGS (1)
  1. OXYCODONE (UNKNOWN) [Suspect]
     Active Substance: OXYCODONE
     Indication: SUICIDE ATTEMPT
     Dosage: UNK
     Route: 065

REACTIONS (6)
  - Suicide attempt [Unknown]
  - Confusional state [Unknown]
  - Vomiting [Unknown]
  - Intentional overdose [Unknown]
  - Loss of consciousness [Unknown]
  - Drug diversion [Unknown]

NARRATIVE: CASE EVENT DATE: 20150722
